FAERS Safety Report 20757919 (Version 1)
Quarter: 2022Q2

REPORT INFORMATION
  Report Type: Spontaneous
  Country: US (occurrence: None)
  Receive Date: 20220427
  Receipt Date: 20220427
  Transmission Date: 20220721
  Serious: No
  Sender: FDA-Public Use
  Company Number: None

PATIENT
  Age: 87 Year
  Sex: Male

DRUGS (1)
  1. CAPECITABINE [Suspect]
     Active Substance: CAPECITABINE
     Dosage: FREQUENCY : TWICE A DAY;?
     Route: 048
     Dates: start: 202204

REACTIONS (4)
  - Dyspnoea [None]
  - Abdominal distension [None]
  - Peripheral swelling [None]
  - Fluid retention [None]

NARRATIVE: CASE EVENT DATE: 20220427
